FAERS Safety Report 8936121 (Version 1)
Quarter: 2012Q4

REPORT INFORMATION
  Report Type: 
  Country: US (occurrence: US)
  Receive Date: 20121130
  Receipt Date: 20121130
  Transmission Date: 20130627
  Serious: No
  Sender: FDA-Public Use
  Company Number: US-ABBOTT-12P-163-0980269-00

PATIENT
  Sex: Male
  Weight: 97.61 kg

DRUGS (5)
  1. ANDROGEL [Suspect]
     Indication: BLOOD TESTOSTERONE DECREASED
     Dosage: 2 pumps
     Route: 061
     Dates: start: 201207, end: 201208
  2. ANDROGEL [Suspect]
     Dosage: 3 pumps
     Route: 061
     Dates: start: 201208, end: 201208
  3. ANDROGEL [Suspect]
     Dosage: 4 pumps
     Route: 061
     Dates: start: 201208
  4. DEXILANT [Concomitant]
     Indication: GASTROOESOPHAGEAL REFLUX DISEASE
     Dosage: Unknown
  5. XANAX [Concomitant]
     Indication: PANIC DISORDER

REACTIONS (7)
  - Apathy [Not Recovered/Not Resolved]
  - Blood testosterone decreased [Unknown]
  - Drug ineffective [Not Recovered/Not Resolved]
  - Asthenia [Not Recovered/Not Resolved]
  - Incorrect dose administered by device [Recovering/Resolving]
  - Application site pain [Recovering/Resolving]
  - Application site irritation [Recovering/Resolving]
